FAERS Safety Report 5234291-4 (Version None)
Quarter: 2007Q1

REPORT INFORMATION
  Report Type: 
  Country: None (occurrence: None)
  Receive Date: 20070209
  Receipt Date: 20070202
  Transmission Date: 20070707
  Serious: Yes (Other)
  Sender: FDA-Public Use
  Company Number: DE-AVENTIS-200710230DE

PATIENT
  Age: 58 Year
  Sex: Female
  Weight: 53 kg

DRUGS (5)
  1. TAXOTERE [Suspect]
     Route: 041
     Dates: start: 20070115, end: 20070115
  2. TAXOTERE [Suspect]
     Route: 041
     Dates: start: 20070122, end: 20070122
  3. DEXAMETHASONE [Concomitant]
     Route: 048
     Dates: start: 20070101
  4. DEXAMETHASONE [Concomitant]
     Route: 041
     Dates: start: 20070101
  5. FENISTIL [Concomitant]
     Dosage: DOSE: NOT REPORTED

REACTIONS (4)
  - MYOCLONUS [None]
  - NERVOUS SYSTEM DISORDER [None]
  - RESTLESSNESS [None]
  - TOOTH DEPOSIT [None]
